FAERS Safety Report 5429034-5 (Version None)
Quarter: 2007Q3

REPORT INFORMATION
  Report Type: 
  Country: None (occurrence: None)
  Receive Date: 20070829
  Receipt Date: 20061205
  Transmission Date: 20080115
  Serious: No
  Sender: FDA-Public Use
  Company Number: A0630424A

PATIENT
  Age: 32 Year
  Sex: Female

DRUGS (2)
  1. MALARONE [Suspect]
     Indication: MALARIA
     Dosage: 250MG PER DAY
     Route: 048
     Dates: start: 20061130
  2. VALTREX [Concomitant]

REACTIONS (6)
  - APHTHOUS STOMATITIS [None]
  - GLOSSODYNIA [None]
  - JOINT SWELLING [None]
  - OEDEMA PERIPHERAL [None]
  - SWELLING FACE [None]
  - SWOLLEN TONGUE [None]
